FAERS Safety Report 24958435 (Version 1)
Quarter: 2025Q1

REPORT INFORMATION
  Report Type: Spontaneous
  Country: ES (occurrence: ES)
  Receive Date: 20250212
  Receipt Date: 20250212
  Transmission Date: 20250408
  Serious: Yes (Death, Other)
  Sender: TAKEDA
  Company Number: ES-INCYTE CORPORATION-2025IN001419

PATIENT

DRUGS (1)
  1. ICLUSIG [Suspect]
     Active Substance: PONATINIB HYDROCHLORIDE
     Indication: Acute lymphocytic leukaemia

REACTIONS (1)
  - Death [Fatal]
